FAERS Safety Report 7305751-7 (Version None)
Quarter: 2011Q1

REPORT INFORMATION
  Report Type: 
  Country: None (occurrence: None)
  Receive Date: 20110222
  Receipt Date: 20110215
  Transmission Date: 20110831
  Serious: Yes (Other)
  Sender: FDA-Public Use
  Company Number: B0696855A

PATIENT
  Sex: Male

DRUGS (2)
  1. AVOLVE [Suspect]
     Indication: BENIGN PROSTATIC HYPERPLASIA
     Dosage: .5MG PER DAY
     Route: 048
     Dates: start: 20101103, end: 20110119
  2. URIEF [Concomitant]
     Indication: BENIGN PROSTATIC HYPERPLASIA
     Dosage: 8MG PER DAY
     Route: 048

REACTIONS (3)
  - DEEP VEIN THROMBOSIS [None]
  - OEDEMA [None]
  - CARDIAC FAILURE [None]
